FAERS Safety Report 4430214-6 (Version None)
Quarter: 2004Q3

REPORT INFORMATION
  Report Type: 
  Country: None (occurrence: None)
  Receive Date: 20040819
  Receipt Date: 20040819
  Transmission Date: 20050211
  Serious: Yes (Hospitalization)
  Sender: FDA-Public Use
  Company Number: None

PATIENT
  Age: 61 Year
  Sex: Male
  Weight: 80 kg

DRUGS (7)
  1. TRIMETHOPRIM + SULFAMETHOXAZOLE [Suspect]
     Indication: URINARY TRACT INFECTION
     Dosage: 1 DS TABLET BID ORAL
     Route: 048
     Dates: start: 20040720, end: 20040725
  2. RISPERIDONE [Concomitant]
  3. FINASTERIDE [Concomitant]
  4. SILDERNAFIL [Concomitant]
  5. LATANOPROST [Concomitant]
  6. ALBUTEROL [Concomitant]
  7. TRAZODONE [Concomitant]

REACTIONS (1)
  - STEVENS-JOHNSON SYNDROME [None]
